FAERS Safety Report 6145282-3 (Version None)
Quarter: 2009Q2

REPORT INFORMATION
  Report Type: 
  Country: None (occurrence: None)
  Receive Date: 20090406
  Receipt Date: 20090329
  Transmission Date: 20091009
  Serious: Yes (Other)
  Sender: FDA-Public Use
  Company Number: US-SANOFI-SYNTHELABO-A03200901350

PATIENT
  Sex: Male

DRUGS (3)
  1. PLAVIX [Suspect]
     Indication: STENT PLACEMENT
     Dosage: UNK
     Route: 048
  2. PLAVIX [Suspect]
     Route: 048
  3. ASPIRIN [Suspect]
     Indication: STENT PLACEMENT
     Dosage: UNK
     Route: 065

REACTIONS (3)
  - OVERDOSE [None]
  - PLATELET AGGREGATION DECREASED [None]
  - VASCULAR OCCLUSION [None]
